FAERS Safety Report 24530938 (Version 1)
Quarter: 2024Q4

REPORT INFORMATION
  Report Type: Spontaneous
  Country: US (occurrence: None)
  Receive Date: 20241021
  Receipt Date: 20241021
  Transmission Date: 20250115
  Serious: Yes (Hospitalization, Other)
  Sender: UNICHEM
  Company Number: US-Unichem Pharmaceuticals (USA) Inc-UCM202410-001368

PATIENT
  Sex: Female

DRUGS (3)
  1. BACLOFEN [Suspect]
     Active Substance: BACLOFEN
     Indication: Product used for unknown indication
     Dosage: UNKNOWN
  2. MIDAZOLAM [Concomitant]
     Active Substance: MIDAZOLAM
     Indication: Sedation
  3. FENTANYL [Concomitant]
     Active Substance: FENTANYL
     Indication: Sedation

REACTIONS (15)
  - Respiratory distress [Recovered/Resolved]
  - Electrocardiogram ST segment elevation [Recovered/Resolved]
  - Stress cardiomyopathy [Recovered/Resolved]
  - Agitation [Recovered/Resolved]
  - Sinus bradycardia [Recovered/Resolved]
  - Hypertension [Recovered/Resolved]
  - Respiratory acidosis [Recovered/Resolved]
  - Hypokalaemia [Recovered/Resolved]
  - Troponin increased [Recovered/Resolved]
  - Cough [Unknown]
  - Unresponsive to stimuli [Recovered/Resolved]
  - Hyperactive pharyngeal reflex [Unknown]
  - Hypotension [Recovered/Resolved]
  - Toxicity to various agents [Unknown]
  - Intentional overdose [Unknown]
